FAERS Safety Report 6456218-X (Version None)
Quarter: 2009Q4

REPORT INFORMATION
  Report Type: 
  Country: None (occurrence: None)
  Receive Date: 20091125
  Receipt Date: 20091111
  Transmission Date: 20100525
  Serious: Yes (Hospitalization, Other)
  Sender: FDA-Public Use
  Company Number: US-ELI_LILLY_AND_COMPANY-US200911004681

PATIENT
  Sex: Female
  Weight: 48.98 kg

DRUGS (11)
  1. FORTEO [Suspect]
     Dosage: 20 UG, DAILY (1/D)
     Dates: start: 20080101, end: 20091023
  2. BENICAR [Concomitant]
  3. LOVAZA [Concomitant]
  4. VITAMINS NOS [Concomitant]
  5. PRILOSEC [Concomitant]
  6. BABY ASPIRIN [Concomitant]
  7. OXYBUTYNIN CHLORIDE [Concomitant]
  8. LENOXIN [Concomitant]
  9. LOPRESSOR [Concomitant]
  10. RESTORIL [Concomitant]
  11. ENSURE /06184901/ [Concomitant]

REACTIONS (10)
  - ABDOMINAL DISCOMFORT [None]
  - ASTHENIA [None]
  - ATRIAL FIBRILLATION [None]
  - BLOOD MAGNESIUM DECREASED [None]
  - BLOOD POTASSIUM DECREASED [None]
  - CARDIAC DISORDER [None]
  - DEHYDRATION [None]
  - DIARRHOEA [None]
  - SECRETION DISCHARGE [None]
  - WEIGHT DECREASED [None]
